FAERS Safety Report 12896580 (Version 3)
Quarter: 2017Q4

REPORT INFORMATION
  Report Type: Report from Study
  Country: JP (occurrence: JP)
  Receive Date: 20161031
  Receipt Date: 20171018
  Transmission Date: 20180320
  Serious: Yes (Death, Life-Threatening, Hospitalization, Other)
  Sender: FDA-Public Use
  Company Number: JP-ASTELLAS-2008JP003666

PATIENT
  Age: 42 Year
  Sex: Female

DRUGS (73)
  1. NOVORAPID [Suspect]
     Active Substance: INSULIN ASPART
     Dosage: 13 IU, TWICE DAILY IN THE MORNING AND AT NOON
     Route: 058
     Dates: start: 20101210, end: 20110203
  2. NOVORAPID [Suspect]
     Active Substance: INSULIN ASPART
     Dosage: 12 IU, TWICE DAILY IN THE MORNING AND AT NOON
     Route: 058
     Dates: start: 20110204, end: 20121105
  3. NU-LOTAN [Concomitant]
     Active Substance: LOSARTAN POTASSIUM
     Route: 048
     Dates: end: 20130408
  4. BENZALIN                           /00036201/ [Concomitant]
     Active Substance: NITRAZEPAM
     Route: 048
     Dates: start: 20080322, end: 20080919
  5. NEUROTROPIN                        /06251301/ [Concomitant]
     Active Substance: ORYCTOLAGUS CUNICULUS SKIN
     Dosage: UNK UNK, AS NEEDED
     Route: 041
  6. NEUROTROPIN                        /06251301/ [Concomitant]
     Active Substance: ORYCTOLAGUS CUNICULUS SKIN
     Dosage: 3.6 IU, ONCE DAILY
     Route: 065
     Dates: start: 20120604, end: 20120604
  7. DIOVAN [Suspect]
     Active Substance: VALSARTAN
     Indication: LUPUS NEPHRITIS
     Route: 048
     Dates: end: 20070729
  8. DIOVAN [Suspect]
     Active Substance: VALSARTAN
     Route: 048
     Dates: start: 20070730, end: 20090206
  9. GABAPEN [Concomitant]
     Active Substance: GABAPENTIN
     Indication: PRODUCT USED FOR UNKNOWN INDICATION
     Route: 048
     Dates: start: 20080609, end: 20081017
  10. SELBEX [Concomitant]
     Active Substance: TEPRENONE
     Route: 048
     Dates: end: 20130408
  11. PRIMPERAN [Concomitant]
     Active Substance: METOCLOPRAMIDE HYDROCHLORIDE
     Indication: VOMITING
  12. NAUZELIN [Concomitant]
     Active Substance: DOMPERIDONE
     Indication: PROPHYLAXIS
     Route: 048
     Dates: start: 20120419, end: 20130128
  13. TACROLIMUS. [Suspect]
     Active Substance: TACROLIMUS
     Route: 048
     Dates: start: 20110520, end: 20130408
  14. PREDONINE [Suspect]
     Active Substance: PREDNISOLONE
     Indication: LUPUS NEPHRITIS
     Route: 048
     Dates: end: 20130408
  15. NU-LOTAN [Concomitant]
     Active Substance: LOSARTAN POTASSIUM
     Indication: LUPUS NEPHRITIS
     Route: 048
  16. BENZALIN                           /00036201/ [Concomitant]
     Active Substance: NITRAZEPAM
     Indication: PRODUCT USED FOR UNKNOWN INDICATION
     Route: 048
     Dates: end: 20080321
  17. GASCON [Concomitant]
     Active Substance: DIMETHICONE
     Indication: ABDOMINAL DISTENSION
     Route: 048
     Dates: start: 20080502
  18. NEUROTROPIN                        /06251301/ [Concomitant]
     Active Substance: ORYCTOLAGUS CUNICULUS SKIN
     Dosage: 3.6 IU, ONCE DAILY
     Route: 065
     Dates: start: 20130129, end: 20130129
  19. ALOSENN                            /02118001/ [Concomitant]
     Active Substance: SENNA LEAF
     Indication: CONSTIPATION
     Route: 048
     Dates: start: 20090109, end: 20110330
  20. SALAGEN [Concomitant]
     Active Substance: PILOCARPINE HYDROCHLORIDE
     Indication: FIBROMYALGIA
     Route: 048
     Dates: start: 20100430, end: 20100625
  21. DAIKENCHUTO [Concomitant]
     Active Substance: HERBALS
     Indication: FIBROMYALGIA
     Route: 048
     Dates: start: 20120810, end: 20130408
  22. CELECOX [Suspect]
     Active Substance: CELECOXIB
     Indication: FIBROMYALGIA
     Route: 048
     Dates: start: 20081212, end: 20081225
  23. TERNELIN [Concomitant]
     Active Substance: TIZANIDINE
     Indication: PRODUCT USED FOR UNKNOWN INDICATION
     Route: 048
     Dates: end: 20130408
  24. BENZALIN                           /00036201/ [Concomitant]
     Active Substance: NITRAZEPAM
     Route: 048
     Dates: end: 20100321
  25. NEUROTROPIN                        /06251301/ [Concomitant]
     Active Substance: ORYCTOLAGUS CUNICULUS SKIN
     Dosage: 3.6 IU, ONCE DAILY
     Route: 065
     Dates: end: 20090626
  26. MUCOSTA [Concomitant]
     Active Substance: REBAMIPIDE
     Route: 048
     Dates: start: 20110520, end: 20120418
  27. SALAGEN [Concomitant]
     Active Substance: PILOCARPINE HYDROCHLORIDE
     Route: 048
     Dates: start: 20100626, end: 20110422
  28. LYRICA [Concomitant]
     Active Substance: PREGABALIN
     Indication: FIBROMYALGIA
     Route: 048
     Dates: start: 20100626, end: 20100916
  29. COLONEL [Concomitant]
     Active Substance: CALCIUM POLYCARBOPHIL
     Indication: DIARRHOEA
     Route: 048
     Dates: start: 20110422, end: 20120118
  30. LASIX [Suspect]
     Active Substance: FUROSEMIDE
     Indication: LUPUS NEPHRITIS
     Route: 048
     Dates: end: 20070731
  31. NOVORAPID [Suspect]
     Active Substance: INSULIN ASPART
     Indication: SUICIDE ATTEMPT
     Dosage: UNK UNK, UNKNOWN FREQ.
     Route: 058
     Dates: start: 20130408, end: 20130408
  32. NEUROTROPIN                        /06251301/ [Concomitant]
     Active Substance: ORYCTOLAGUS CUNICULUS SKIN
     Indication: FIBROMYALGIA
     Route: 041
     Dates: start: 20080706, end: 20080808
  33. NEUROTROPIN                        /06251301/ [Concomitant]
     Active Substance: ORYCTOLAGUS CUNICULUS SKIN
     Dosage: 3.6 IU, ONCE DAILY
     Route: 065
     Dates: start: 20120323, end: 20120323
  34. VOLTAREN [Concomitant]
     Active Substance: DICLOFENAC SODIUM
     Indication: HEADACHE
     Route: 048
     Dates: start: 20090904
  35. LYRICA [Concomitant]
     Active Substance: PREGABALIN
     Indication: PROPHYLAXIS
     Route: 048
     Dates: start: 20100917, end: 20101004
  36. LYRICA [Concomitant]
     Active Substance: PREGABALIN
     Route: 048
     Dates: start: 20120419, end: 20130408
  37. CERCINE [Concomitant]
     Active Substance: DIAZEPAM
     Indication: FIBROMYALGIA
     Route: 065
     Dates: start: 20120604, end: 20120604
  38. YOKUKANSAN [Concomitant]
     Active Substance: HERBALS
     Indication: FIBROMYALGIA
     Route: 048
     Dates: start: 20121220, end: 20130408
  39. ALDACTONE A [Suspect]
     Active Substance: SPIRONOLACTONE
     Indication: LUPUS NEPHRITIS
     Route: 048
     Dates: end: 20070731
  40. PAXIL [Suspect]
     Active Substance: PAROXETINE HYDROCHLORIDE
     Indication: PRODUCT USED FOR UNKNOWN INDICATION
     Route: 048
  41. TOLEDOMIN [Suspect]
     Active Substance: MILNACIPRAN HYDROCHLORIDE
     Indication: FIBROMYALGIA
     Route: 048
     Dates: start: 20081225, end: 20130408
  42. NOVORAPID [Suspect]
     Active Substance: INSULIN ASPART
     Indication: DIABETES MELLITUS MANAGEMENT
     Dosage: 20 IU, ONCE DAILY IN THE EVENING
     Route: 058
     Dates: end: 20130408
  43. NOVORAPID [Suspect]
     Active Substance: INSULIN ASPART
     Indication: DIABETES MELLITUS MANAGEMENT
     Route: 058
  44. NOVORAPID [Suspect]
     Active Substance: INSULIN ASPART
     Indication: SUICIDE ATTEMPT
     Dosage: 14 IU, TWICE DAILY IN THE MORNING AND AT NOON
     Route: 058
     Dates: end: 20101209
  45. GASCON [Concomitant]
     Active Substance: DIMETHICONE
     Route: 048
     Dates: end: 20110422
  46. MOHRUS [Concomitant]
     Active Substance: KETOPROFEN
     Indication: PRODUCT USED FOR UNKNOWN INDICATION
     Dosage: UNK UNK, PASTED DEPENDING ON A SYMPTOM
     Route: 061
     Dates: start: 20081004
  47. LYRICA [Concomitant]
     Active Substance: PREGABALIN
     Route: 048
     Dates: start: 20110909, end: 20120418
  48. PONSTEL [Concomitant]
     Active Substance: MEFENAMIC ACID
     Indication: FIBROMYALGIA
     Route: 048
     Dates: start: 20110520, end: 20120418
  49. TRAMCET [Concomitant]
     Active Substance: ACETAMINOPHEN\TRAMADOL
     Indication: FIBROMYALGIA
     Route: 048
     Dates: start: 20120419, end: 20130408
  50. LAC-B GRANULAR POWDER N [Concomitant]
     Indication: DIARRHOEA
     Route: 048
     Dates: start: 20110520, end: 20110714
  51. SERENACE [Suspect]
     Active Substance: HALOPERIDOL
     Indication: PRODUCT USED FOR UNKNOWN INDICATION
     Dosage: 0.75 MG, ONCE DAILY
     Route: 048
     Dates: end: 20130408
  52. PAXIL [Suspect]
     Active Substance: PAROXETINE HYDROCHLORIDE
     Route: 048
     Dates: end: 20120322
  53. NOVORAPID [Suspect]
     Active Substance: INSULIN ASPART
     Dosage: 15 IU/DAY, TWICE DAILY IN THE MORNING AND AT NOON
     Route: 058
     Dates: start: 20121106, end: 20130408
  54. ONEALFA [Concomitant]
     Active Substance: ALFACALCIDOL
     Indication: PRODUCT USED FOR UNKNOWN INDICATION
     Dosage: 0.5 ?G, ONCE DAILY
     Route: 048
     Dates: end: 20130408
  55. NU-LOTAN [Concomitant]
     Active Substance: LOSARTAN POTASSIUM
     Indication: PRODUCT USED FOR UNKNOWN INDICATION
     Route: 065
     Dates: start: 20090207, end: 20091225
  56. PURSENNID                          /00571902/ [Concomitant]
     Active Substance: SENNOSIDES A AND B
     Indication: PRODUCT USED FOR UNKNOWN INDICATION
     Route: 048
     Dates: end: 20130408
  57. PL [Concomitant]
     Active Substance: ACETAMINOPHEN\CAFFEINE\PROMETHAZINE\SALICYLAMIDE
     Indication: VIRAL UPPER RESPIRATORY TRACT INFECTION
     Route: 048
     Dates: start: 20081003, end: 20081005
  58. CERCINE [Concomitant]
     Active Substance: DIAZEPAM
     Indication: HYPOGLYCAEMIC COMA
  59. TACROLIMUS. [Suspect]
     Active Substance: TACROLIMUS
     Indication: LUPUS NEPHRITIS
     Route: 048
     Dates: start: 20070628, end: 20110519
  60. LUNETORON [Suspect]
     Active Substance: BUMETANIDE
     Indication: LUPUS NEPHRITIS
     Route: 048
     Dates: start: 20070628, end: 20070719
  61. DEPAKENE [Suspect]
     Active Substance: VALPROIC ACID
     Indication: FIBROMYALGIA
     Route: 048
     Dates: start: 20080708, end: 20130408
  62. NOVORAPID [Suspect]
     Active Substance: INSULIN ASPART
     Dosage: UNK UNK, UNKNOWN FREQ.
     Route: 058
     Dates: start: 20130408, end: 20130408
  63. BENZALIN                           /00036201/ [Concomitant]
     Active Substance: NITRAZEPAM
     Route: 048
     Dates: start: 20080920
  64. BENZALIN                           /00036201/ [Concomitant]
     Active Substance: NITRAZEPAM
     Route: 048
     Dates: end: 20130408
  65. LENDORMIN [Concomitant]
     Active Substance: BROTIZOLAM
     Indication: PRODUCT USED FOR UNKNOWN INDICATION
     Dosage: 0.25 MG, ONCE DAILY
     Route: 048
     Dates: end: 20130408
  66. MS ONSHIPPU [Concomitant]
     Active Substance: CAMPHOR\CAPSICUM\METHYL SALICYLATE
     Indication: PRODUCT USED FOR UNKNOWN INDICATION
     Dosage: UNK UNK, PASTED DEPENDING ON A SYMPTOM
     Route: 061
     Dates: end: 20081003
  67. HALCION [Concomitant]
     Active Substance: TRIAZOLAM
     Indication: PRODUCT USED FOR UNKNOWN INDICATION
     Dosage: 0.5 MG, ONCE DAILY
     Route: 048
     Dates: end: 20130408
  68. SELBEX [Concomitant]
     Active Substance: TEPRENONE
     Indication: PRODUCT USED FOR UNKNOWN INDICATION
     Route: 048
  69. SELBEX [Concomitant]
     Active Substance: TEPRENONE
     Route: 048
  70. MUCOSTA [Concomitant]
     Active Substance: REBAMIPIDE
     Indication: GASTRITIS PROPHYLAXIS
     Route: 048
     Dates: start: 20090904
  71. PRIMPERAN [Concomitant]
     Active Substance: METOCLOPRAMIDE HYDROCHLORIDE
     Indication: ABDOMINAL PAIN
     Dosage: UNK UNK, UNKNOWN FREQ.
     Route: 041
     Dates: start: 20090102, end: 20090102
  72. LYRICA [Concomitant]
     Active Substance: PREGABALIN
     Route: 048
     Dates: start: 20101005, end: 20110908
  73. SHAKUYAKUKANZOTO [Concomitant]
     Active Substance: HERBALS
     Indication: FIBROMYALGIA
     Route: 048
     Dates: start: 20130301, end: 20130408

REACTIONS (17)
  - Constipation [Recovering/Resolving]
  - Fibromyalgia [Not Recovered/Not Resolved]
  - Abdominal distension [Recovering/Resolving]
  - Alanine aminotransferase increased [Recovered/Resolved]
  - Blood pressure decreased [Recovered/Resolved]
  - Diabetes mellitus [Recovered/Resolved]
  - Blood uric acid increased [Recovered/Resolved]
  - Nasopharyngitis [Recovered/Resolved]
  - Hypoglycaemic coma [Fatal]
  - Aspartate aminotransferase increased [Recovered/Resolved]
  - Blood creatinine increased [Recovered/Resolved]
  - Diabetes mellitus [Recovered/Resolved]
  - Oedema [Recovered/Resolved]
  - Headache [Recovering/Resolving]
  - Fibromyalgia [Recovering/Resolving]
  - Diarrhoea [Recovered/Resolved]
  - Suicide attempt [Fatal]

NARRATIVE: CASE EVENT DATE: 20070704
